FAERS Safety Report 21735076 (Version 1)
Quarter: 2022Q4

REPORT INFORMATION
  Report Type: Spontaneous
  Country: FR (occurrence: FR)
  Receive Date: 20221215
  Receipt Date: 20221215
  Transmission Date: 20230112
  Serious: Yes (Other)
  Sender: FDA-Public Use
  Company Number: None

PATIENT
  Age: 79 Year
  Sex: Female

DRUGS (2)
  1. TOCILIZUMAB [Suspect]
     Active Substance: TOCILIZUMAB
     Indication: Giant cell arteritis
     Dosage: 1 INJ/21 DAY (FORM STRENGTH: 20 MG/ML)
     Route: 042
     Dates: start: 201711, end: 20210114
  2. TOCILIZUMAB [Suspect]
     Active Substance: TOCILIZUMAB
     Indication: Giant cell arteritis
     Route: 058
     Dates: start: 20210204, end: 20220902

REACTIONS (1)
  - Sarcoma of skin [Recovered/Resolved with Sequelae]

NARRATIVE: CASE EVENT DATE: 20220803
